FAERS Safety Report 8025609-8 (Version None)
Quarter: 2012Q1

REPORT INFORMATION
  Report Type: 
  Country: None (occurrence: None)
  Receive Date: 20120105
  Receipt Date: 20120102
  Transmission Date: 20120608
  Serious: Yes (Hospitalization)
  Sender: FDA-Public Use
  Company Number: KR-ASTRAZENECA-2010SE43289

PATIENT
  Age: 28804 Day
  Sex: Male
  Weight: 54.5 kg

DRUGS (8)
  1. NITROGLYCERIN [Concomitant]
     Indication: ANGINA PECTORIS
     Dates: start: 20050704
  2. CELIPROLOL [Concomitant]
     Indication: ANGINA PECTORIS
     Route: 048
     Dates: start: 20050705
  3. CLOPIDOGREL [Concomitant]
     Indication: ANGINA PECTORIS
     Route: 048
     Dates: start: 20050704
  4. ISOSORBIDE DINITRATE [Concomitant]
     Indication: ANGINA PECTORIS
     Dates: start: 20050706
  5. DAGES [Concomitant]
     Indication: DYSPEPSIA
     Dates: start: 20050630
  6. ASPIRIN [Concomitant]
     Indication: ANGINA PECTORIS
     Route: 048
     Dates: start: 20050703
  7. DILTIAZEM HCL [Concomitant]
     Indication: ANGINA PECTORIS
     Route: 048
     Dates: start: 20050703
  8. CRESTOR [Suspect]
     Indication: HYPERLIPIDAEMIA
     Route: 048
     Dates: start: 20050705, end: 20050806

REACTIONS (1)
  - OEDEMA PERIPHERAL [None]
